FAERS Safety Report 8830896 (Version 2)
Quarter: 2013Q2

REPORT INFORMATION
  Report Type: Report from Study
  Country: US (occurrence: US)
  Receive Date: 20121008
  Receipt Date: 20130509
  Transmission Date: 20140414
  Serious: Yes (Hospitalization)
  Sender: FDA-Public Use
  Company Number: US-ACTELION-A-NJ2012-72147

PATIENT
  Age: 54 Year
  Sex: Female

DRUGS (3)
  1. TRACLEER [Suspect]
     Indication: PULMONARY ARTERIAL HYPERTENSION
     Dosage: UNK
     Route: 048
  2. SILDENAFIL [Concomitant]
  3. COUMADIN [Concomitant]

REACTIONS (8)
  - Atrial fibrillation [Unknown]
  - Feeling abnormal [Unknown]
  - Dizziness [Unknown]
  - Cardiac ablation [Unknown]
  - Bronchitis [Unknown]
  - Dyspnoea [Unknown]
  - Malaise [Unknown]
  - Syncope [Unknown]
